FAERS Safety Report 5262295-4 (Version None)
Quarter: 2007Q1

REPORT INFORMATION
  Report Type: 
  Country: None (occurrence: None)
  Receive Date: 20070312
  Receipt Date: 20070305
  Transmission Date: 20070707
  Serious: Yes (Death, Hospitalization)
  Sender: FDA-Public Use
  Company Number: PHBS2007IN03991

PATIENT
  Age: 1 Month
  Weight: 3.75 kg

DRUGS (2)
  1. CARBAMAZEPINE [Suspect]
     Dosage: MATERNAL DOSE 900 MG/DAY
     Route: 064
  2. CARBAMAZEPINE [Suspect]
     Dosage: MATERNAL DOSE 1200 MG/DAY
     Route: 064

REACTIONS (26)
  - APNOEIC ATTACK [None]
  - CEREBRAL ARTERIOVENOUS MALFORMATION HAEMORRHAGIC [None]
  - CEREBRAL HAEMATOMA [None]
  - CLONUS [None]
  - COMPUTERISED TOMOGRAM ABNORMAL [None]
  - CONGENITAL FACIAL NERVE HYPOPLASIA [None]
  - CONVULSION [None]
  - CRYING [None]
  - CSF GLUCOSE INCREASED [None]
  - CSF PROTEIN INCREASED [None]
  - DECREASED ACTIVITY [None]
  - DELAYED FONTANELLE CLOSURE [None]
  - DRUG EXPOSURE DURING PREGNANCY [None]
  - GENERAL PHYSICAL HEALTH DETERIORATION [None]
  - HYDROCEPHALUS [None]
  - HYPERREFLEXIA [None]
  - HYPERTELORISM OF ORBIT [None]
  - HYPERTONIA [None]
  - INTRAVENTRICULAR HAEMORRHAGE [None]
  - MICROGNATHIA [None]
  - NUCLEAR MAGNETIC RESONANCE IMAGING BRAIN ABNORMAL [None]
  - PYREXIA [None]
  - RED BLOOD CELLS CSF POSITIVE [None]
  - SURGERY [None]
  - ULTRASOUND SCAN ABNORMAL [None]
  - XANTHOCHROMIA [None]
